FAERS Safety Report 18147237 (Version 1)
Quarter: 2020Q3

REPORT INFORMATION
  Report Type: Report from Study
  Country: JP (occurrence: JP)
  Receive Date: 20200813
  Receipt Date: 20200813
  Transmission Date: 20201103
  Serious: Yes (Other)
  Sender: FDA-Public Use
  Company Number: JP-JNJFOC-20200811065

PATIENT

DRUGS (5)
  1. VELCADE [Suspect]
     Active Substance: BORTEZOMIB
     Indication: PLASMA CELL MYELOMA
     Route: 065
  2. DARZALEX [Suspect]
     Active Substance: DARATUMUMAB
     Indication: PLASMA CELL MYELOMA
     Route: 042
  3. DEXAMETHASONE. [Suspect]
     Active Substance: DEXAMETHASONE
     Indication: PLASMA CELL MYELOMA
     Route: 065
  4. LENALIDOMIDE [Suspect]
     Active Substance: LENALIDOMIDE
     Indication: PLASMA CELL MYELOMA
     Route: 065
  5. ACETAMINOPHEN. [Concomitant]
     Active Substance: ACETAMINOPHEN

REACTIONS (16)
  - Tumour lysis syndrome [Unknown]
  - Depression [Unknown]
  - Thrombocytopenia [Unknown]
  - Neutropenia [Unknown]
  - Constipation [Unknown]
  - Anaemia [Unknown]
  - Escherichia sepsis [Recovered/Resolved]
  - Nausea [Unknown]
  - Infusion related reaction [Unknown]
  - Fatigue [Unknown]
  - Cytomegalovirus test positive [Unknown]
  - Insomnia [Unknown]
  - Transaminases increased [Unknown]
  - Febrile neutropenia [Unknown]
  - Blood creatinine increased [Unknown]
  - Lymphopenia [Unknown]
